FAERS Safety Report 20763376 (Version 1)
Quarter: 2022Q2

REPORT INFORMATION
  Report Type: Report from Study
  Country: DE (occurrence: DE)
  Receive Date: 20220428
  Receipt Date: 20220428
  Transmission Date: 20220721
  Serious: Yes (Other)
  Sender: FDA-Public Use
  Company Number: DE-SA-SAC20220426001778

PATIENT
  Age: 64 Year
  Sex: Male
  Weight: 83 kg

DRUGS (9)
  1. ISATUXIMAB [Suspect]
     Active Substance: ISATUXIMAB
     Indication: Plasma cell myeloma
     Dosage: 830 MG
     Route: 042
     Dates: start: 20190607, end: 20190607
  2. ISATUXIMAB [Suspect]
     Active Substance: ISATUXIMAB
     Dosage: 830 MG
     Route: 042
     Dates: start: 20220304, end: 20220304
  3. LENALIDOMIDE [Suspect]
     Active Substance: LENALIDOMIDE
     Indication: Plasma cell myeloma
     Dosage: 5 MG
     Route: 048
     Dates: start: 20190607, end: 20190607
  4. LENALIDOMIDE [Suspect]
     Active Substance: LENALIDOMIDE
     Dosage: 5 MG
     Route: 048
     Dates: start: 20220324, end: 20220324
  5. BORTEZOMIB [Suspect]
     Active Substance: BORTEZOMIB
     Indication: Plasma cell myeloma
     Dosage: 2.88 MG
     Route: 058
     Dates: start: 20190607, end: 20190607
  6. BORTEZOMIB [Suspect]
     Active Substance: BORTEZOMIB
     Dosage: 2.88 MG
     Route: 058
     Dates: start: 20190819, end: 20190819
  7. DEXAMETHASONE [Suspect]
     Active Substance: DEXAMETHASONE
     Indication: Plasma cell myeloma
     Dosage: 20 MG
     Route: 042
     Dates: start: 20190607, end: 20190607
  8. DEXAMETHASONE [Suspect]
     Active Substance: DEXAMETHASONE
     Dosage: 20 MG
     Route: 042
     Dates: start: 20200603, end: 20200603
  9. HYDROCHLOROTHIAZIDE [Concomitant]
     Active Substance: HYDROCHLOROTHIAZIDE
     Indication: Hypertension
     Dosage: 12.5 MG, QD

REACTIONS (1)
  - COVID-19 [Recovered/Resolved]

NARRATIVE: CASE EVENT DATE: 20220325
